FAERS Safety Report 15115358 (Version 1)
Quarter: 2018Q3

REPORT INFORMATION
  Report Type: Report from Study
  Country: US (occurrence: US)
  Receive Date: 20180706
  Receipt Date: 20180706
  Transmission Date: 20181010
  Serious: Yes (Other)
  Sender: FDA-Public Use
  Company Number: US-SHIRE-US201805124

PATIENT
  Sex: Female

DRUGS (1)
  1. HUMAN IMMUNOGLOBULIN; HYALURONIDASE [Suspect]
     Active Substance: HUMAN IMMUNOGLOBULIN G\HYALURONIDASE RECOMBINANT HUMAN
     Indication: IMMUNODEFICIENCY COMMON VARIABLE
     Dosage: 30 G, 1X A MONTH
     Route: 065

REACTIONS (10)
  - Ear infection [Unknown]
  - Malaise [Unknown]
  - Sinusitis [Unknown]
  - Ill-defined disorder [Unknown]
  - Upper-airway cough syndrome [Unknown]
  - Inability to afford medication [Unknown]
  - Fatigue [Unknown]
  - Headache [Unknown]
  - General physical health deterioration [Unknown]
  - Dyspnoea [Unknown]
